FAERS Safety Report 4862567-9 (Version None)
Quarter: 2005Q4

REPORT INFORMATION
  Report Type: 
  Country: None (occurrence: None)
  Receive Date: 20051221
  Receipt Date: 20051216
  Transmission Date: 20060501
  Serious: Yes (Other)
  Sender: FDA-Public Use
  Company Number: BE-GLAXOSMITHKLINE-B0404111A

PATIENT
  Age: 50 Year
  Sex: Male

DRUGS (8)
  1. ZYBAN [Suspect]
     Indication: SMOKING CESSATION THERAPY
     Dosage: 300MG PER DAY
  2. NEBIVOLOL HCL [Concomitant]
  3. CO-DIOVANE [Concomitant]
  4. SYMBICORT [Concomitant]
  5. LIPITOR [Concomitant]
  6. ELTHYRONE [Concomitant]
  7. MEDROL [Concomitant]
  8. ANTIBIOTICS [Concomitant]

REACTIONS (6)
  - ARTHRALGIA [None]
  - DERMATITIS BULLOUS [None]
  - OEDEMA PERIPHERAL [None]
  - RASH [None]
  - RASH PRURITIC [None]
  - SKIN LESION [None]
